FAERS Safety Report 21194665 (Version 3)
Quarter: 2023Q1

REPORT INFORMATION
  Report Type: Spontaneous
  Country: US (occurrence: US)
  Receive Date: 20220810
  Receipt Date: 20230213
  Transmission Date: 20230417
  Serious: No
  Sender: FDA-Public Use
  Company Number: US-AMGEN-USASP2022136592

PATIENT
  Age: 59 Year
  Sex: Male

DRUGS (7)
  1. OTEZLA [Suspect]
     Active Substance: APREMILAST
     Indication: Psoriasis
     Dosage: 30 MILLIGRAM, BID
     Route: 048
     Dates: start: 20220706, end: 2022
  2. OTEZLA [Suspect]
     Active Substance: APREMILAST
     Dosage: 30 MILLIGRAM, BID
     Route: 048
     Dates: start: 2022, end: 2022
  3. OTEZLA [Suspect]
     Active Substance: APREMILAST
     Dosage: 30 MILLIGRAM, BID
     Route: 048
     Dates: start: 2022
  4. FISH OIL [Concomitant]
     Active Substance: FISH OIL
     Dosage: 1200 MILLIGRAM
  5. VITAMINS [Concomitant]
     Active Substance: VITAMINS
     Dosage: UNK
  6. VITAMIN C [Concomitant]
     Active Substance: ASCORBIC ACID
     Dosage: 1000 MILLIGRAM
  7. ZINC [Concomitant]
     Active Substance: ZINC
     Dosage: 50 MILLIGRAM

REACTIONS (5)
  - Urinary tract infection [Unknown]
  - Diarrhoea [Not Recovered/Not Resolved]
  - Depression [Unknown]
  - Sleep disorder [Not Recovered/Not Resolved]
  - Abnormal dreams [Not Recovered/Not Resolved]

NARRATIVE: CASE EVENT DATE: 20220101
